FAERS Safety Report 9019483 (Version 2)
Quarter: 2013Q1

REPORT INFORMATION
  Report Type: Report from Study
  Country: UG (occurrence: UG)
  Receive Date: 20130118
  Receipt Date: 20130218
  Transmission Date: 20140127
  Serious: Yes (Death, Hospitalization)
  Sender: FDA-Public Use
  Company Number: PHHY2013UG003933

PATIENT
  Age: 1 None
  Sex: Female
  Weight: 9 kg

DRUGS (4)
  1. ARTEMETHER\LUMEFANTRINE [Suspect]
     Indication: MALARIA
     Dosage: 20/ 120 MG, UNK
     Dates: start: 20120924, end: 20120924
  2. PARACETAMOL [Concomitant]
     Dosage: 250 MG, UNK
     Route: 048
     Dates: start: 20120924, end: 20120924
  3. AMOXICILLIN [Concomitant]
     Dosage: 250 MG, UNK
     Route: 048
     Dates: start: 20120924, end: 20120924
  4. ORS [Concomitant]
     Indication: DIARRHOEA
     Dosage: UNK UKN, UNK
     Route: 048
     Dates: start: 20120924, end: 20120924

REACTIONS (12)
  - Diarrhoea [Fatal]
  - Pyrexia [Unknown]
  - Abnormal behaviour [Unknown]
  - Influenza [Unknown]
  - Decreased appetite [Unknown]
  - Asthenia [Unknown]
  - Cough [Unknown]
  - Vomiting [Unknown]
  - Pruritus [Unknown]
  - Dehydration [Unknown]
  - Jaundice [Unknown]
  - Plasmodium falciparum infection [Unknown]
